FAERS Safety Report 7296061-5 (Version None)
Quarter: 2011Q1

REPORT INFORMATION
  Report Type: 
  Country: None (occurrence: None)
  Receive Date: 20110216
  Receipt Date: 20110202
  Transmission Date: 20110831
  Serious: Yes (Hospitalization)
  Sender: FDA-Public Use
  Company Number: US-ROCHE-755946

PATIENT
  Sex: Male
  Weight: 131.3 kg

DRUGS (11)
  1. ASPIRIN [Concomitant]
  2. REMERON [Concomitant]
     Dosage: FRE: Q HS.
  3. NEURONTIN [Concomitant]
     Dates: start: 20110120
  4. ALLOPURINOL [Concomitant]
     Dates: start: 20100605
  5. OXYBUTYNIN [Concomitant]
     Route: 048
  6. LOVENOX [Concomitant]
     Route: 058
     Dates: start: 20101111
  7. OXYCODONE [Concomitant]
     Dosage: DOSE  15-20 MG QID
  8. VALPROIC ACID [Suspect]
     Indication: SARCOMA
     Dosage: DOSE FORM PILL
     Route: 065
     Dates: start: 20110124, end: 20110128
  9. BEVACIZUMAB [Suspect]
     Indication: SARCOMA
     Route: 065
     Dates: start: 20100121
  10. METHADONE HYDROCHLORIDE [Suspect]
     Indication: NECK PAIN
     Route: 065
     Dates: start: 20110121, end: 20110124
  11. SENOCOT-S [Concomitant]

REACTIONS (1)
  - URINARY RETENTION [None]
